FAERS Safety Report 5663801-8 (Version None)
Quarter: 2008Q1

REPORT INFORMATION
  Report Type: 
  Country: None (occurrence: None)
  Receive Date: 20080310
  Receipt Date: 20080226
  Transmission Date: 20080703
  Serious: Yes (Other)
  Sender: FDA-Public Use
  Company Number: 2008US-12827

PATIENT
  Age: 75 Year
  Sex: Female
  Weight: 77.6 kg

DRUGS (8)
  1. VERAPAMIL(VERAPAMIL HYDROCHLORIDE) TABLET MODIFIED RELEASE, 240MG [Suspect]
     Indication: HYPERTENSION
     Dosage: 240 MG, QD, ORAL
     Route: 048
     Dates: start: 20070928, end: 20071111
  2. IRBESARTAN [Suspect]
     Indication: DRUG USE FOR UNKNOWN INDICATION
  3. AMLODIPINE [Concomitant]
  4. EZETIMIBE ORAL DRUG UNSPECIFIED ORAL [Concomitant]
  5. METOPROLOL ORAL DRUG UNSPECIFIED FORM [Concomitant]
  6. CLOPIDOGREL ORAL DRUG UNSPECIFIED FORM [Concomitant]
  7. ATORVASTATIN ORAL DRUG UNSPECIFIED FORM [Concomitant]
  8. ATORVASTATIN ORAL DRUG UNSPECIFIED FORM [Concomitant]

REACTIONS (1)
  - CYTOLYTIC HEPATITIS [None]
